FAERS Safety Report 8543795-8 (Version None)
Quarter: 2012Q3

REPORT INFORMATION
  Report Type: 
  Country: None (occurrence: None)
  Receive Date: 20120727
  Receipt Date: 20120717
  Transmission Date: 20120928
  Serious: Yes (Disabling, Other)
  Sender: FDA-Public Use
  Company Number: GB-PFIZER INC-2012171622

PATIENT
  Sex: Female

DRUGS (5)
  1. MABTHERA [Suspect]
     Indication: BURKITT'S LYMPHOMA
     Dosage: UNK
  2. VINCRISTINE [Suspect]
     Indication: PRODUCT USED FOR UNKNOWN INDICATION
     Dosage: UNK
  3. DOXORUBICIN HCL [Suspect]
     Dosage: UNK
  4. PREDNISONE TAB [Suspect]
     Indication: PRODUCT USED FOR UNKNOWN INDICATION
     Dosage: UNK
  5. CYCLOPHOSPHAMIDE [Suspect]
     Dosage: UNK

REACTIONS (2)
  - ABASIA [None]
  - MYELOPATHY [None]
